FAERS Safety Report 6899090-6 (Version None)
Quarter: 2010Q3

REPORT INFORMATION
  Report Type: 
  Country: None (occurrence: None)
  Receive Date: 20100802
  Receipt Date: 20071226
  Transmission Date: 20110219
  Serious: No
  Sender: FDA-Public Use
  Company Number: US-PFIZER INC-2007108704

PATIENT
  Sex: Female
  Weight: 127.01 kg

DRUGS (16)
  1. LYRICA [Suspect]
     Indication: NEURALGIA
     Route: 048
     Dates: start: 20071001, end: 20071210
  2. DURAGESIC-100 [Concomitant]
  3. PERCOCET [Concomitant]
  4. OSTEO BI-FLEX [Concomitant]
  5. BACLOFEN [Concomitant]
  6. LEXAPRO [Concomitant]
  7. XANAX [Concomitant]
  8. DYAZIDE [Concomitant]
  9. HYDROCHLOROTHIAZIDE [Concomitant]
  10. VITAMINS [Concomitant]
  11. VITAMIN B COMPLEX CAP [Concomitant]
  12. ZINC [Concomitant]
  13. ACETYLSALICYLIC ACID SRT [Concomitant]
  14. NEXIUM [Concomitant]
  15. SOFTENERS, EMOLLIENTS [Concomitant]
  16. TRAZODONE [Concomitant]

REACTIONS (3)
  - ALOPECIA [None]
  - BURNING SENSATION [None]
  - DRY SKIN [None]
